FAERS Safety Report 16135787 (Version 1)
Quarter: 2019Q1

REPORT INFORMATION
  Report Type: Spontaneous
  Country: FR (occurrence: FR)
  Receive Date: 20190329
  Receipt Date: 20190329
  Transmission Date: 20190418
  Serious: Yes (Hospitalization)
  Sender: FDA-Public Use
  Company Number: FR-TEVA-2019-FR-1030995

PATIENT
  Age: 72 Year
  Sex: Male
  Weight: 82 kg

DRUGS (9)
  1. ETOPOSIDE TEVA [Suspect]
     Active Substance: ETOPOSIDE
     Indication: LARGE CELL LUNG CANCER METASTATIC
     Dosage: 190 MILLIGRAM DAILY;
     Route: 042
     Dates: start: 20190221, end: 20190223
  2. ETOPOSIDE TEVA [Suspect]
     Active Substance: ETOPOSIDE
     Route: 042
     Dates: start: 20190221, end: 20190221
  3. EMEND [Concomitant]
     Active Substance: APREPITANT
     Indication: PROPHYLAXIS OF NAUSEA AND VOMITING
     Dosage: 125 MILLIGRAM DAILY;
     Route: 048
     Dates: start: 20190221, end: 20190221
  4. ONDANSETRON ACCORD [Concomitant]
     Active Substance: ONDANSETRON
     Dosage: 16 MILLIGRAM DAILY;
     Route: 042
     Dates: start: 20190221, end: 20190221
  5. ONDANSETRON ACCORD [Concomitant]
     Active Substance: ONDANSETRON
     Indication: PROPHYLAXIS OF NAUSEA AND VOMITING
     Dosage: 16 MILLIGRAM DAILY;
     Route: 042
     Dates: start: 20190221, end: 20190221
  6. METHYLPREDNISOLONE MYLAN [Concomitant]
     Active Substance: METHYLPREDNISOLONE
     Indication: PROPHYLAXIS OF NAUSEA AND VOMITING
     Dosage: 60 MILLIGRAM DAILY;
     Route: 042
     Dates: start: 20190221, end: 20190223
  7. EMEND [Concomitant]
     Active Substance: APREPITANT
     Indication: PROPHYLAXIS OF NAUSEA AND VOMITING
     Dosage: 80 MILLIGRAM DAILY;
     Route: 048
     Dates: start: 20190222, end: 20190225
  8. METHYLPREDNISOLONE MYLAN [Concomitant]
     Active Substance: METHYLPREDNISOLONE
     Dosage: 16 MILLIGRAM DAILY;
     Route: 042
     Dates: start: 20190221, end: 20190221
  9. CARBOPLATINE ACCORD 10 MG/ML, SOLUTION POUR PERFUSION [Suspect]
     Active Substance: CARBOPLATIN
     Indication: LARGE CELL LUNG CANCER METASTATIC
     Dosage: 850 MILLIGRAM DAILY;
     Route: 042
     Dates: start: 20190221, end: 20190221

REACTIONS (2)
  - Pyrexia [Recovered/Resolved]
  - Pancytopenia [Recovering/Resolving]

NARRATIVE: CASE EVENT DATE: 20190301
